FAERS Safety Report 4767797-2 (Version None)
Quarter: 2005Q3

REPORT INFORMATION
  Report Type: 
  Country: None (occurrence: None)
  Receive Date: 20050912
  Receipt Date: 20050908
  Transmission Date: 20060218
  Serious: Yes (Hospitalization)
  Sender: FDA-Public Use
  Company Number: ITWYE961708SEP05

PATIENT
  Age: 21 Year
  Sex: Female

DRUGS (1)
  1. LOETTE (LEVONORGESTREL/ETHINYL ESTRADIOL, TABLET, 0) [Suspect]
     Indication: ORAL CONTRACEPTION
     Dosage: 1 DOSE 1X PER 1 DAY ORAL
     Route: 048
     Dates: start: 20041201, end: 20050902

REACTIONS (2)
  - PULMONARY EMBOLISM [None]
  - PULMONARY INFARCTION [None]
